FAERS Safety Report 6527393-3 (Version None)
Quarter: 2009Q4

REPORT INFORMATION
  Report Type: 
  Country: None (occurrence: None)
  Receive Date: 20091230
  Receipt Date: 20091230
  Transmission Date: 20100525
  Serious: No
  Sender: FDA-Public Use
  Company Number: None

PATIENT
  Age: 74 Year
  Sex: Female
  Weight: 90.7194 kg

DRUGS (4)
  1. COLD REMEDY RAPID MELTS WITH VITAMIN C AND ECHINACEA [Suspect]
     Indication: NASOPHARYNGITIS
     Dosage: 3 DOSES - 3 DOSES
     Dates: start: 20091203, end: 20091203
  2. ADVAIR MDI [Concomitant]
  3. ALLEGRA [Concomitant]
  4. PEPCID [Concomitant]

REACTIONS (2)
  - AGEUSIA [None]
  - MALAISE [None]
